FAERS Safety Report 18650056 (Version 1)
Quarter: 2020Q4

REPORT INFORMATION
  Report Type: Spontaneous
  Country: None (occurrence: US)
  Receive Date: 20201222
  Receipt Date: 20201222
  Transmission Date: 20210114
  Serious: No
  Sender: FDA-Public Use
  Company Number: US-XTTRIUM LABORATORIES, INC-2103327

PATIENT
  Sex: Male

DRUGS (1)
  1. SCRUB CARE EXIDINE -4 CHG [Suspect]
     Active Substance: CHLORHEXIDINE GLUCONATE
     Indication: INGROWN HAIR
     Route: 061
     Dates: start: 20201113, end: 20201113

REACTIONS (1)
  - Genital burning sensation [Unknown]

NARRATIVE: CASE EVENT DATE: 20201113
